FAERS Safety Report 13346241 (Version 1)
Quarter: 2017Q1

REPORT INFORMATION
  Report Type: Spontaneous
  Country: US (occurrence: US)
  Receive Date: 20170317
  Receipt Date: 20170317
  Transmission Date: 20170428
  Serious: Yes (Hospitalization, Other)
  Sender: FDA-Public Use
  Company Number: US-GLAXOSMITHKLINE-US2017034259

PATIENT
  Age: 68 Year
  Sex: Male

DRUGS (2)
  1. ADVAIR DISKUS [Suspect]
     Active Substance: FLUTICASONE PROPIONATE\SALMETEROL XINAFOATE
     Indication: CHRONIC OBSTRUCTIVE PULMONARY DISEASE
     Dosage: 250/50
     Route: 055
  2. FLULAVAL QUADRIVALENT 2016/2017 [Suspect]
     Active Substance: INFLUENZA A VIRUS A/CALIFORNIA/7/2009 X-179A (H1N1) ANTIGEN (UV, FORMALDEHYDE INACTIVATED)\INFLUENZA A VIRUS A/HONG KONG/4801/2014 X-263B (H3N2) ANTIGEN (UV, FORMALDEHYDE INACTIVATED)\INFLUENZA B VIRUS B/BRISBANE/60/2008 ANTIGEN (UV, FORMALDEHYDE INACTIVATED)\INFLUENZA B VIRUS B/PHUKET/3073/2013 ANT
     Indication: PROPHYLAXIS
     Dates: start: 201609, end: 201609

REACTIONS (6)
  - Influenza [Recovered/Resolved]
  - Dizziness [Recovered/Resolved]
  - Staphylococcal infection [Recovering/Resolving]
  - Dehydration [Recovered/Resolved]
  - Asthenia [Unknown]
  - Vaccination failure [Unknown]

NARRATIVE: CASE EVENT DATE: 201612
